FAERS Safety Report 6832833-6 (Version None)
Quarter: 2010Q3

REPORT INFORMATION
  Report Type: 
  Country: None (occurrence: None)
  Receive Date: 20100712
  Receipt Date: 20100706
  Transmission Date: 20110219
  Serious: Yes (Hospitalization)
  Sender: FDA-Public Use
  Company Number: US-AMGEN-KDC422584

PATIENT
  Sex: Female

DRUGS (1)
  1. PANITUMUMAB [Suspect]
     Indication: SQUAMOUS CELL CARCINOMA

REACTIONS (3)
  - INFECTION [None]
  - NAUSEA [None]
  - VOMITING [None]
